FAERS Safety Report 8310089-5 (Version None)
Quarter: 2012Q2

REPORT INFORMATION
  Report Type: 
  Country: None (occurrence: None)
  Receive Date: 20120423
  Receipt Date: 20120411
  Transmission Date: 20120825
  Serious: Yes (Death, Hospitalization)
  Sender: FDA-Public Use
  Company Number: UTC-016944

PATIENT
  Age: 59 Year
  Sex: Female
  Weight: 63.6 kg

DRUGS (5)
  1. TRACLEER [Concomitant]
  2. REMODULIN [Suspect]
     Indication: PULMONARY ARTERIAL HYPERTENSION
     Dosage: 240.48 UG/KG (0.167 UG/KG, 1 IN 1 MIN), INTRAVENOUS, 240.48 UG/KG (0.167 UG/KG, 1 IN 1 MIN), INTRAVE
     Route: 042
     Dates: start: 20060724
  3. REMODULIN [Suspect]
     Indication: PULMONARY ARTERIAL HYPERTENSION
     Dosage: 240.48 UG/KG (0.167 UG/KG, 1 IN 1 MIN), INTRAVENOUS, 240.48 UG/KG (0.167 UG/KG, 1 IN 1 MIN), INTRAVE
     Route: 042
     Dates: start: 20090731
  4. COUMADIN [Concomitant]
  5. DIURETICS (DIURETICS) [Concomitant]

REACTIONS (2)
  - NODAL RHYTHM [None]
  - CARDIAC ARREST [None]
